FAERS Safety Report 13644333 (Version 1)
Quarter: 2017Q2

REPORT INFORMATION
  Report Type: Spontaneous
  Country: US (occurrence: US)
  Receive Date: 20170612
  Receipt Date: 20170612
  Transmission Date: 20170830
  Serious: No
  Sender: FDA-Public Use
  Company Number: US-ROCHE-1303125

PATIENT
  Sex: Male

DRUGS (12)
  1. XELODA [Suspect]
     Active Substance: CAPECITABINE
     Indication: COLON CANCER
     Dosage: MORNING, 7 DAYS ON 7 DAYS OFF
     Route: 048
     Dates: start: 201209
  2. ASPIRIN. [Concomitant]
     Active Substance: ASPIRIN
  3. HUMALOG [Concomitant]
     Active Substance: INSULIN LISPRO
  4. CLONIDINE. [Concomitant]
     Active Substance: CLONIDINE
  5. LANTUS [Concomitant]
     Active Substance: INSULIN GLARGINE
  6. LIPITOR [Concomitant]
     Active Substance: ATORVASTATIN CALCIUM
  7. LYRICA [Concomitant]
     Active Substance: PREGABALIN
  8. FLOMAX [Concomitant]
     Active Substance: TAMSULOSIN HYDROCHLORIDE
  9. XELODA [Suspect]
     Active Substance: CAPECITABINE
     Dosage: EVENING, 7 DAYS ON AND 7 DAYS OFF
     Route: 048
     Dates: start: 201209
  10. EXFORGE [Concomitant]
     Active Substance: AMLODIPINE BESYLATE\VALSARTAN
  11. HYDROCHLOROTHIAZIDE. [Concomitant]
     Active Substance: HYDROCHLOROTHIAZIDE
  12. BYSTOLIC [Concomitant]
     Active Substance: NEBIVOLOL HYDROCHLORIDE

REACTIONS (1)
  - Fatigue [Unknown]
